FAERS Safety Report 10682793 (Version 1)
Quarter: 2014Q4

REPORT INFORMATION
  Report Type: Spontaneous
  Country: US (occurrence: None)
  Receive Date: 20141217
  Receipt Date: 20141217
  Transmission Date: 20150529
  Serious: Yes (Hospitalization)
  Sender: FDA-Public Use
  Company Number: TAP2009Q00449

PATIENT
  Sex: Female

DRUGS (1)
  1. KAPIDEX [Suspect]
     Active Substance: DEXLANSOPRAZOLE
     Indication: GASTROOESOPHAGEAL REFLUX DISEASE
     Route: 048
     Dates: start: 2009, end: 2009

REACTIONS (1)
  - Diarrhoea [None]

NARRATIVE: CASE EVENT DATE: 2009
